FAERS Safety Report 5889028-2 (Version None)
Quarter: 2008Q3

REPORT INFORMATION
  Report Type: 
  Country: None (occurrence: None)
  Receive Date: 20080919
  Receipt Date: 20070928
  Transmission Date: 20090109
  Serious: No
  Sender: FDA-Public Use
  Company Number: US-KINGPHARMUSA00001-K200701263

PATIENT

DRUGS (3)
  1. SONATA [Suspect]
     Indication: MIDDLE INSOMNIA
     Dosage: 10 MG, PRN
     Route: 048
     Dates: start: 20060113
  2. SONATA [Suspect]
     Indication: INSOMNIA
  3. MULTIVITAMIN                       /00831701/ [Concomitant]

REACTIONS (1)
  - DRUG INEFFECTIVE [None]
